FAERS Safety Report 11683950 (Version 1)
Quarter: 2015Q4

REPORT INFORMATION
  Report Type: Spontaneous
  Country: US (occurrence: US)
  Receive Date: 20151029
  Receipt Date: 20151029
  Transmission Date: 20160304
  Serious: No
  Sender: FDA-Public Use
  Company Number: US-ROCHE-1549761

PATIENT
  Age: 60 Year
  Sex: Female

DRUGS (3)
  1. PERJETA [Suspect]
     Active Substance: PERTUZUMAB
     Indication: BREAST CANCER METASTATIC
     Dosage: ON DAY 1?SHE RECEIVED HER LAST TREATMENT ON 27/FEB/2015.
     Route: 065
  2. TAXOTERE [Concomitant]
     Active Substance: DOCETAXEL
     Indication: BREAST CANCER METASTATIC
     Route: 065
  3. HERCEPTIN [Suspect]
     Active Substance: TRASTUZUMAB
     Indication: BREAST CANCER METASTATIC
     Dosage: ON DAY 1?SHE RECEIVED HER LAST TREATMENT ON 27/FEB/2015.
     Route: 065

REACTIONS (1)
  - Abdominal abscess [Unknown]

NARRATIVE: CASE EVENT DATE: 201502
